FAERS Safety Report 8760824 (Version 1)
Quarter: 2012Q4

REPORT INFORMATION
  Report Type: 
  Country: US (occurrence: US)
  Receive Date: 20120830
  Receipt Date: 20120830
  Transmission Date: 20130627
  Serious: Yes (Hospitalization, Other)
  Sender: FDA-Public Use
  Company Number: US-SANOFI-AVENTIS-2012SA044771

PATIENT
  Age: 39 Year
  Sex: Female
  Weight: 49.89 kg

DRUGS (18)
  1. LANTUS [Suspect]
     Indication: TYPE I DIABETES MELLITUS
     Dosage: 5-15 units 1 x day (adjusted when sugars )
     Route: 058
  2. SOLOSTAR [Suspect]
     Indication: TYPE I DIABETES MELLITUS
  3. NOVOLOG [Concomitant]
     Dosage: per sliding scale
     Route: 065
  4. IRON [Concomitant]
  5. FOLIC ACID [Concomitant]
  6. OMEPRAZOLE [Concomitant]
  7. PREDNISONE [Concomitant]
  8. ASA [Concomitant]
  9. LORAZEPAM [Concomitant]
  10. MYCOPHENOLATE SODIUM [Concomitant]
  11. CITALOPRAM [Concomitant]
  12. LEVETIRACETAM [Concomitant]
  13. TACROLIMUS [Concomitant]
  14. BACLOFEN [Concomitant]
  15. AMLODIPINE [Concomitant]
  16. ALL OTHER THERAPEUTIC PRODUCTS [Concomitant]
  17. SENNA [Concomitant]
  18. BISACODYL [Concomitant]

REACTIONS (2)
  - Hypoglycaemia unawareness [Unknown]
  - Hypoglycaemia [Unknown]
